FAERS Safety Report 23737970 (Version 1)
Quarter: 2024Q2

REPORT INFORMATION
  Report Type: Spontaneous
  Country: CA (occurrence: CA)
  Receive Date: 20240412
  Receipt Date: 20240412
  Transmission Date: 20240716
  Serious: Yes (Hospitalization)
  Sender: FDA-Public Use
  Company Number: CA-BAYER-2024A051193

PATIENT
  Age: 49 Year
  Sex: Female

DRUGS (1)
  1. GADOBUTROL [Suspect]
     Active Substance: GADOBUTROL
     Indication: Magnetic resonance imaging
     Dosage: .9 ML
     Dates: start: 20240404

REACTIONS (4)
  - Rhinorrhoea [None]
  - Eye pruritus [None]
  - Urticaria [None]
  - Chest discomfort [None]
